FAERS Safety Report 6635749-3 (Version None)
Quarter: 2010Q1

REPORT INFORMATION
  Report Type: 
  Country: None (occurrence: None)
  Receive Date: 20100310
  Receipt Date: 20100224
  Transmission Date: 20100710
  Serious: Yes (Other)
  Sender: FDA-Public Use
  Company Number: 1-21669051

PATIENT
  Age: 27 Year
  Sex: Male

DRUGS (4)
  1. METRONIDAZOLE [Suspect]
     Indication: ABSCESS
     Dosage: 1.5 GRAMS PER DAY,
  2. CEFOTAXIME [Concomitant]
  3. TETRACOSIDE [Concomitant]
  4. THIAMPHENICOL [Concomitant]

REACTIONS (6)
  - CEREBELLAR SYNDROME [None]
  - CONFUSIONAL STATE [None]
  - DRUG TOXICITY [None]
  - NERVOUS SYSTEM DISORDER [None]
  - PERIPHERAL SENSORY NEUROPATHY [None]
  - PSYCHOMOTOR RETARDATION [None]
